FAERS Safety Report 12879730 (Version 1)
Quarter: 2016Q4

REPORT INFORMATION
  Report Type: Other
  Country: RS (occurrence: RS)
  Receive Date: 20161025
  Receipt Date: 20161025
  Transmission Date: 20170207
  Serious: No
  Sender: FDA-Public Use
  Company Number: RS-LUPIN PHARMACEUTICALS INC.-2016-04195

PATIENT
  Age: 4 Year
  Sex: Male

DRUGS (2)
  1. CEFTRIAXONE. [Suspect]
     Active Substance: CEFTRIAXONE
     Indication: PRODUCT USED FOR UNKNOWN INDICATION
     Route: 065
  2. AMPICILLIN [Suspect]
     Active Substance: AMPICILLIN
     Indication: PRODUCT USED FOR UNKNOWN INDICATION
     Route: 065

REACTIONS (1)
  - Urticaria [Unknown]
